FAERS Safety Report 10792624 (Version 2)
Quarter: 2016Q1

REPORT INFORMATION
  Report Type: Spontaneous
  Country: US (occurrence: US)
  Receive Date: 20150213
  Receipt Date: 20160108
  Transmission Date: 20160525
  Serious: Yes (Other)
  Sender: FDA-Public Use
  Company Number: US-ELI_LILLY_AND_COMPANY-US201502000498

PATIENT
  Age: 63 Year
  Sex: Female

DRUGS (3)
  1. CYMBALTA [Suspect]
     Active Substance: DULOXETINE HYDROCHLORIDE
     Indication: PRODUCT USED FOR UNKNOWN INDICATION
     Dosage: UNK, UNKNOWN
     Route: 065
  2. HUMIRA [Suspect]
     Active Substance: ADALIMUMAB
     Dosage: 40 MG, 2/M
     Route: 065
     Dates: end: 20150219
  3. HUMIRA [Suspect]
     Active Substance: ADALIMUMAB
     Indication: RHEUMATOID ARTHRITIS
     Dosage: 40 MG, 2/M
     Route: 065
     Dates: start: 20141016, end: 20141211

REACTIONS (14)
  - Onychomadesis [Unknown]
  - Bronchitis [Unknown]
  - Fall [Unknown]
  - Pain in extremity [Unknown]
  - Peripheral swelling [Unknown]
  - Frustration tolerance decreased [Unknown]
  - Fear of disease [Unknown]
  - Paraesthesia [Unknown]
  - Malaise [Unknown]
  - Headache [Recovered/Resolved]
  - Drug ineffective [Unknown]
  - Hand fracture [Unknown]
  - Contusion [Unknown]
  - Drug withdrawal syndrome [Unknown]

NARRATIVE: CASE EVENT DATE: 20141016
